FAERS Safety Report 17075697 (Version 1)
Quarter: 2019Q4

REPORT INFORMATION
  Report Type: Spontaneous
  Country: US (occurrence: US)
  Receive Date: 20191125
  Receipt Date: 20191125
  Transmission Date: 20200122
  Serious: Yes (Other)
  Sender: FDA-Public Use
  Company Number: None

PATIENT
  Age: 45 Year
  Sex: Female

DRUGS (1)
  1. RANITIDINE. [Suspect]
     Active Substance: RANITIDINE
     Indication: ENLARGED UVULA
     Dates: start: 20190820, end: 20190910

REACTIONS (2)
  - Insomnia [None]
  - Lymphadenopathy [None]

NARRATIVE: CASE EVENT DATE: 20190910
